FAERS Safety Report 16053497 (Version 2)
Quarter: 2019Q2

REPORT INFORMATION
  Report Type: Spontaneous
  Country: US (occurrence: US)
  Receive Date: 20190308
  Receipt Date: 20190418
  Transmission Date: 20190711
  Serious: Yes (Other)
  Sender: FDA-Public Use
  Company Number: US-PFIZER INC-2019099034

PATIENT
  Age: 54 Year

DRUGS (1)
  1. SIROLIMUS. [Suspect]
     Active Substance: SIROLIMUS
     Indication: HEART TRANSPLANT
     Dosage: UNK

REACTIONS (5)
  - Hypertensive emergency [Unknown]
  - Drug ineffective for unapproved indication [Unknown]
  - Drug hypersensitivity [Unknown]
  - Product use in unapproved indication [Unknown]
  - Malaise [Unknown]
